FAERS Safety Report 8051190-3 (Version None)
Quarter: 2012Q1

REPORT INFORMATION
  Report Type: 
  Country: None (occurrence: None)
  Receive Date: 20120117
  Receipt Date: 20120114
  Transmission Date: 20120608
  Serious: Yes (Death)
  Sender: FDA-Public Use
  Company Number: PHHY2012DE002259

PATIENT
  Age: 70 Year
  Sex: Male

DRUGS (6)
  1. METFORMIN HCL [Concomitant]
     Dosage: 2 DF, QD
     Route: 048
  2. AMLODIPINE [Concomitant]
     Indication: HYPERTENSION
     Dosage: 0.5 DF, BID
     Route: 048
  3. HCT BETA [Concomitant]
     Indication: CARDIAC FAILURE
     Dosage: 1 DF, QD
     Route: 048
  4. ONBREZ [Suspect]
     Indication: CHRONIC OBSTRUCTIVE PULMONARY DISEASE
     Dosage: 300 UG, QD
     Dates: start: 20111202
  5. IRBESARTAN AND HYDROCHLOROTHIAZIDE [Concomitant]
     Indication: HYPERTENSION
     Dosage: 1 DF, QD
     Route: 048
  6. RAMIPRIL [Concomitant]
     Dosage: 0.5 DF, BID
     Route: 048

REACTIONS (1)
  - SUDDEN CARDIAC DEATH [None]
